FAERS Safety Report 8489405-X (Version None)
Quarter: 2012Q3

REPORT INFORMATION
  Report Type: 
  Country: None (occurrence: None)
  Receive Date: 20120705
  Receipt Date: 20120625
  Transmission Date: 20120928
  Serious: Yes (Hospitalization, Other)
  Sender: FDA-Public Use
  Company Number: US-ELI_LILLY_AND_COMPANY-US201106006456

PATIENT
  Sex: Female
  Weight: 67.12 kg

DRUGS (24)
  1. FORTEO [Suspect]
     Dosage: 20 UG, QD
     Route: 058
     Dates: start: 20110301, end: 20111201
  2. LIDOCAINE [Concomitant]
  3. NAPROXEN [Concomitant]
  4. POTASSIUM [Concomitant]
  5. ANTIBIOTICS [Concomitant]
  6. FORTEO [Suspect]
     Dosage: 20 UG, QD
     Route: 058
     Dates: start: 20110301
  7. KLOR-CON [Concomitant]
  8. PREDNISONE [Concomitant]
  9. CALCIUM +VIT D [Concomitant]
  10. FORTEO [Suspect]
     Indication: OSTEOPOROSIS
     Dosage: 20 UG, QD
     Route: 058
     Dates: start: 20110301
  11. METFORMIN HCL [Concomitant]
  12. TRAMADOL HYDROCHLORIDE [Concomitant]
  13. GABAPENTIN [Concomitant]
  14. PLAQUENIL [Concomitant]
  15. OMEPRAZOLE [Concomitant]
  16. METOPROLOL SUCCINATE [Concomitant]
  17. LEVETIRACETAM [Concomitant]
  18. CELLCEPT [Concomitant]
     Dosage: 500 MG, UNK
  19. HYDROXYCHLOROQUINE SULFATE [Concomitant]
  20. HYDROCODONE BITARTRATE AND ACETAMINOPHEN [Concomitant]
  21. METOCLOPRAMIDE [Concomitant]
  22. INSULIN [Concomitant]
  23. METHOTREXATE [Concomitant]
  24. ONDANSETRON [Concomitant]

REACTIONS (22)
  - SCREAMING [None]
  - AMNESIA [None]
  - PAIN IN EXTREMITY [None]
  - MALAISE [None]
  - DIZZINESS [None]
  - ABDOMINAL PAIN UPPER [None]
  - LOSS OF CONSCIOUSNESS [None]
  - VOMITING [None]
  - PAIN [None]
  - HEADACHE [None]
  - SPINAL COLUMN STENOSIS [None]
  - INTENTIONAL DRUG MISUSE [None]
  - PNEUMONIA [None]
  - SALIVARY HYPERSECRETION [None]
  - HOSPITALISATION [None]
  - URINARY TRACT INFECTION [None]
  - MYOSITIS [None]
  - NAUSEA [None]
  - DIARRHOEA [None]
  - CYSTITIS [None]
  - KIDNEY INFECTION [None]
  - ADVERSE REACTION [None]
